FAERS Safety Report 5945572-0 (Version None)
Quarter: 2008Q4

REPORT INFORMATION
  Report Type: 
  Country: None (occurrence: None)
  Receive Date: 20081105
  Receipt Date: 20081027
  Transmission Date: 20090506
  Serious: Yes (Hospitalization)
  Sender: FDA-Public Use
  Company Number: GXKR2008HU10269

PATIENT
  Sex: Female

DRUGS (8)
  1. METOPROLOL HEXAL (NGX) (METOPROLOL) FILM-COATED TABLET, 50MG [Suspect]
     Indication: HYPERTENSION
     Dosage: 50 MG, BID, ORAL
     Route: 048
  2. NORMODIPIN (AMLODIPINE) [Concomitant]
  3. ASPIRIN [Concomitant]
  4. CITALOPRAM HYDROBROMIDE [Concomitant]
  5. NOOTROPIL (PIRACETAM) [Concomitant]
  6. SIMVASTATIN [Concomitant]
  7. MEFORAL (METFORMIN) [Concomitant]
  8. QUAMATEL (FAMOTIDINE) [Concomitant]

REACTIONS (1)
  - ATRIAL FIBRILLATION [None]
